FAERS Safety Report 5627937-X (Version None)
Quarter: 2008Q1

REPORT INFORMATION
  Report Type: 
  Country: None (occurrence: None)
  Receive Date: 20080215
  Receipt Date: 20080206
  Transmission Date: 20080703
  Serious: Yes (Other)
  Sender: FDA-Public Use
  Company Number: US-ROCHE-463724

PATIENT
  Age: 25 Year
  Sex: Female

DRUGS (2)
  1. ISOTRETINOIN [Suspect]
     Indication: ACNE
     Route: 065
  2. TESTOSTERONE [Concomitant]
     Route: 065

REACTIONS (1)
  - VAGINAL HAEMORRHAGE [None]
